FAERS Safety Report 6043760-9 (Version None)
Quarter: 2009Q1

REPORT INFORMATION
  Report Type: 
  Country: None (occurrence: None)
  Receive Date: 20090120
  Receipt Date: 20090112
  Transmission Date: 20090719
  Serious: Yes (Other)
  Sender: FDA-Public Use
  Company Number: PHHY2009AR01083

PATIENT
  Sex: Male

DRUGS (2)
  1. EXELON [Suspect]
     Indication: AMNESIA
     Dosage: UNK
     Route: 062
     Dates: start: 20081126, end: 20081218
  2. INSULIN [Concomitant]

REACTIONS (4)
  - PRURITUS [None]
  - RASH [None]
  - SCAB [None]
  - URTICARIA [None]
